FAERS Safety Report 6376070-0 (Version None)
Quarter: 2009Q3

REPORT INFORMATION
  Report Type: 
  Country: None (occurrence: None)
  Receive Date: 20090918
  Receipt Date: 20090907
  Transmission Date: 20100115
  Serious: Yes (Hospitalization)
  Sender: FDA-Public Use
  Company Number: KR-JNJFOC-20090902796

PATIENT
  Age: 60 Year
  Sex: Male
  Weight: 66 kg

DRUGS (11)
  1. DECITABINE        (DECITABINE) LYOPHILIZED POWDER [Suspect]
     Indication: MYELODYSPLASTIC SYNDROME
     Dosage: 20 MG/M2, 1 IN 1 DAY, INTRAVENOUS
     Route: 042
     Dates: start: 20090213, end: 20090217
  2. DECITABINE        (DECITABINE) LYOPHILIZED POWDER [Suspect]
     Indication: MYELODYSPLASTIC SYNDROME
     Dosage: 20 MG/M2, 1 IN 1 DAY, INTRAVENOUS
     Route: 042
     Dates: start: 20090316, end: 20090320
  3. DECITABINE        (DECITABINE) LYOPHILIZED POWDER [Suspect]
     Indication: MYELODYSPLASTIC SYNDROME
     Dosage: 20 MG/M2, 1 IN 1 DAY, INTRAVENOUS
     Route: 042
     Dates: start: 20090413, end: 20090417
  4. DECITABINE        (DECITABINE) LYOPHILIZED POWDER [Suspect]
     Indication: MYELODYSPLASTIC SYNDROME
     Dosage: 20 MG/M2, 1 IN 1 DAY, INTRAVENOUS
     Route: 042
     Dates: start: 20090511, end: 20090515
  5. DECITABINE        (DECITABINE) LYOPHILIZED POWDER [Suspect]
     Indication: MYELODYSPLASTIC SYNDROME
     Dosage: 20 MG/M2, 1 IN 1 DAY, INTRAVENOUS
     Route: 042
     Dates: start: 20090610, end: 20090614
  6. DECITABINE        (DECITABINE) LYOPHILIZED POWDER [Suspect]
     Indication: MYELODYSPLASTIC SYNDROME
     Dosage: 20 MG/M2, 1 IN 1 DAY, INTRAVENOUS
     Route: 042
     Dates: start: 20090714, end: 20090718
  7. ZOLPIDEM TARTRATE      (ZOLPIDEM TARTRATE) UNSPECIFIED [Concomitant]
  8. CALCIUM CARBONATE  (CALCIUM CARBONATE) UNSPECIFIED [Concomitant]
  9. FOLIC ACID [Concomitant]
  10. DIAZEPAM   (DIAZEPAM) UNSPECIFIED [Concomitant]
  11. VITAMIN B     (VITAMIN B NOS) UNSPECIFIED [Concomitant]

REACTIONS (1)
  - DISSEMINATED TUBERCULOSIS [None]
